FAERS Safety Report 26201064 (Version 1)
Quarter: 2025Q4

REPORT INFORMATION
  Report Type: Report from Study
  Country: US (occurrence: US)
  Receive Date: 20251226
  Receipt Date: 20251226
  Transmission Date: 20260117
  Serious: Yes (Hospitalization)
  Sender: ETON PHARMACEUTICALS, INC
  Company Number: US-ETON-2025ETO000671

PATIENT

DRUGS (3)
  1. ALKINDI SPRINKLE [Suspect]
     Active Substance: HYDROCORTISONE
     Indication: Adrenogenital syndrome
     Dosage: 1 MILLIGRAM, 2 MG IN THE MORNING, 2 MG IN THE AFTERNOON, AND 3 MG IN THE EVENING
     Route: 048
     Dates: start: 20220912, end: 20251210
  2. ALKINDI SPRINKLE [Suspect]
     Active Substance: HYDROCORTISONE
     Dosage: 2 MILLIGRAM, 2 MG IN THE MORNING, 2 MG IN THE AFTERNOON, AND 3 MG IN THE EVENING
     Route: 048
     Dates: start: 20220912, end: 20251210
  3. ALKINDI SPRINKLE [Suspect]
     Active Substance: HYDROCORTISONE
     Dosage: STRESS DOSE 10 MILLIGRAM, Q8H
     Route: 048
     Dates: start: 20251210

REACTIONS (1)
  - Constipation [Unknown]

NARRATIVE: CASE EVENT DATE: 20251210
